FAERS Safety Report 23186968 (Version 5)
Quarter: 2024Q1

REPORT INFORMATION
  Report Type: Spontaneous
  Country: PL (occurrence: PL)
  Receive Date: 20231115
  Receipt Date: 20240109
  Transmission Date: 20240410
  Serious: No
  Sender: FDA-Public Use
  Company Number: PL-PFIZER INC-PV202300179458

PATIENT
  Age: 16 Month
  Sex: Male
  Weight: 10.4 kg

DRUGS (2)
  1. BENEFIX [Suspect]
     Active Substance: COAGULATION FACTOR IX RECOMBINANT HUMAN\ISOPROPYL ALCOHOL
     Indication: Factor IX deficiency
     Dosage: 250 IU/J.M
     Dates: start: 202003
  2. BENEFIX [Suspect]
     Active Substance: COAGULATION FACTOR IX RECOMBINANT HUMAN\ISOPROPYL ALCOHOL
     Dosage: 500
     Dates: start: 20230627

REACTIONS (1)
  - Syringe issue [Unknown]

NARRATIVE: CASE EVENT DATE: 20231030
